FAERS Safety Report 12824719 (Version 2)
Quarter: 2016Q4

REPORT INFORMATION
  Report Type: Report from Study
  Country: US (occurrence: US)
  Receive Date: 20161007
  Receipt Date: 20161103
  Transmission Date: 20170207
  Serious: Yes (Hospitalization)
  Sender: FDA-Public Use
  Company Number: US-NAPPMUNDI-USA-2016-0133928

PATIENT
  Age: 57 Year
  Sex: Male
  Weight: 102.4 kg

DRUGS (3)
  1. DIFLUCAN [Suspect]
     Active Substance: FLUCONAZOLE
     Indication: CELLULITIS
     Dosage: UNK
     Route: 048
  2. OXYCODONE HYDROCHLORIDE. [Suspect]
     Active Substance: OXYCODONE HYDROCHLORIDE
     Indication: PAIN
     Dosage: 40 MG, TID
     Route: 048
     Dates: start: 2007, end: 20160923
  3. OXYCODONE HYDROCHLORIDE. [Suspect]
     Active Substance: OXYCODONE HYDROCHLORIDE
     Indication: ARTHRITIS

REACTIONS (7)
  - Cellulitis [Not Recovered/Not Resolved]
  - Feeling abnormal [Unknown]
  - Feeling cold [Unknown]
  - Skin disorder [Unknown]
  - Off label use [Unknown]
  - Hyperhidrosis [Unknown]
  - Scratch [Unknown]

NARRATIVE: CASE EVENT DATE: 201604
